FAERS Safety Report 6288873-1 (Version None)
Quarter: 2009Q3

REPORT INFORMATION
  Report Type: 
  Country: None (occurrence: None)
  Receive Date: 20090729
  Receipt Date: 20090716
  Transmission Date: 20100115
  Serious: Yes (Other)
  Sender: FDA-Public Use
  Company Number: GB-ELI_LILLY_AND_COMPANY-GB200810002664

PATIENT
  Sex: Female

DRUGS (1)
  1. CYMBALTA [Suspect]
     Indication: DEPRESSION
     Dosage: 90 MG, DAILY (1/D)

REACTIONS (3)
  - DRUG EXPOSURE DURING PREGNANCY [None]
  - ENDOMETRITIS [None]
  - PLACENTA PRAEVIA HAEMORRHAGE [None]
